FAERS Safety Report 9783941 (Version 1)
Quarter: 2013Q4

REPORT INFORMATION
  Report Type: Spontaneous
  Country: TW (occurrence: TW)
  Receive Date: 20131226
  Receipt Date: 20131226
  Transmission Date: 20140711
  Serious: Yes (Death, Other)
  Sender: FDA-Public Use
  Company Number: PHHY2013TW148886

PATIENT
  Sex: Female

DRUGS (4)
  1. CARBOPLATIN [Suspect]
     Indication: CHEMOTHERAPY
  2. CARBOPLATIN [Suspect]
     Indication: ADENOID CYSTIC CARCINOMA
  3. CARBOPLATIN [Suspect]
     Indication: METASTASES TO BONE
  4. LIPOSOMAL DOXORUBICIN HYDROCHLORIDE [Suspect]
     Indication: CHEMOTHERAPY

REACTIONS (5)
  - Adenoid cystic carcinoma [Fatal]
  - Metastases to central nervous system [Fatal]
  - Metastases to chest wall [Fatal]
  - Malignant neoplasm progression [Fatal]
  - Ascites [Unknown]
